FAERS Safety Report 7255841-2 (Version None)
Quarter: 2011Q1

REPORT INFORMATION
  Report Type: 
  Country: None (occurrence: None)
  Receive Date: 20110129
  Receipt Date: 20100520
  Transmission Date: 20110831
  Serious: No
  Sender: FDA-Public Use
  Company Number: US-ABBOTT-10P-163-0646098-00

PATIENT
  Sex: Female

DRUGS (1)
  1. HUMIRA [Suspect]
     Indication: RHEUMATOID ARTHRITIS
     Dates: start: 20010101, end: 20100506

REACTIONS (10)
  - NERVOUSNESS [None]
  - EAR DISCOMFORT [None]
  - PULMONARY MASS [None]
  - HERPES ZOSTER [None]
  - DIZZINESS [None]
  - LIPOMA [None]
  - UNEVALUABLE EVENT [None]
  - COMPUTERISED TOMOGRAM ABNORMAL [None]
  - JOINT INSTABILITY [None]
  - NASAL CONGESTION [None]
